FAERS Safety Report 25400336 (Version 3)
Quarter: 2025Q3

REPORT INFORMATION
  Report Type: Spontaneous
  Country: EU (occurrence: EU)
  Receive Date: 20250605
  Receipt Date: 20250919
  Transmission Date: 20251020
  Serious: Yes (Hospitalization, Other)
  Sender: ROCHE
  Company Number: EU-CHEPLA-2025006714

PATIENT
  Age: 64 Year
  Sex: Male

DRUGS (13)
  1. GANCICLOVIR [Suspect]
     Active Substance: GANCICLOVIR
     Indication: Antiviral prophylaxis
     Route: 065
     Dates: start: 202307
  2. GANCICLOVIR [Suspect]
     Active Substance: GANCICLOVIR
     Route: 065
     Dates: start: 202308
  3. MYCOPHENOLATE MOFETIL [Suspect]
     Active Substance: MYCOPHENOLATE MOFETIL
     Indication: Heart transplant
     Route: 065
  4. BASILIXIMAB [Suspect]
     Active Substance: BASILIXIMAB
     Indication: Heart transplant
     Route: 065
  5. TACROLIMUS [Suspect]
     Active Substance: TACROLIMUS
     Indication: Heart transplant
     Route: 065
  6. VALGANCICLOVIR [Concomitant]
     Active Substance: VALGANCICLOVIR
     Indication: Antiviral prophylaxis
     Route: 065
     Dates: start: 202304
  7. VALGANCICLOVIR [Concomitant]
     Active Substance: VALGANCICLOVIR
     Route: 065
     Dates: start: 202404
  8. FOSCARNET [Concomitant]
     Active Substance: FOSCARNET
     Indication: Antiviral prophylaxis
     Route: 065
     Dates: start: 202307
  9. FOSCARNET [Concomitant]
     Active Substance: FOSCARNET
     Indication: Renal impairment
     Route: 065
     Dates: start: 202404
  10. MARIBAVIR [Concomitant]
     Active Substance: MARIBAVIR
     Indication: Antiviral prophylaxis
     Route: 065
     Dates: start: 202307
  11. MARIBAVIR [Concomitant]
     Active Substance: MARIBAVIR
     Route: 065
     Dates: start: 202308
  12. MARIBAVIR [Concomitant]
     Active Substance: MARIBAVIR
     Route: 065
     Dates: start: 202403
  13. EVEROLIMUS [Concomitant]
     Active Substance: EVEROLIMUS
     Indication: Antiviral prophylaxis
     Route: 065
     Dates: end: 202404

REACTIONS (5)
  - Thrombotic microangiopathy [Recovering/Resolving]
  - Pancytopenia [Unknown]
  - Pneumonia [Unknown]
  - Cytomegalovirus infection [Not Recovered/Not Resolved]
  - Drug resistance [Unknown]

NARRATIVE: CASE EVENT DATE: 20230701
